FAERS Safety Report 24303265 (Version 3)
Quarter: 2025Q3

REPORT INFORMATION
  Report Type: Report from Study
  Country: ID (occurrence: ID)
  Receive Date: 20240910
  Receipt Date: 20250803
  Transmission Date: 20251020
  Serious: Yes (Death, Other)
  Sender: ALEXION PHARMACEUTICALS
  Company Number: 2024A204037

PATIENT
  Sex: Female

DRUGS (1)
  1. OSIMERTINIB [Suspect]
     Active Substance: OSIMERTINIB
     Indication: Metastases to central nervous system
     Dosage: 80 MILLIGRAM, QD
     Dates: start: 20240325

REACTIONS (1)
  - Malignant neoplasm progression [Fatal]
